FAERS Safety Report 19359912 (Version 1)
Quarter: 2021Q2

REPORT INFORMATION
  Report Type: Spontaneous
  Country: US (occurrence: US)
  Receive Date: 20210601
  Receipt Date: 20210601
  Transmission Date: 20210717
  Serious: No
  Sender: FDA-Public Use
  Company Number: US-PFIZER INC-2021247800

PATIENT
  Age: 67 Year
  Sex: Female

DRUGS (2)
  1. TALAZOPARIB. [Suspect]
     Active Substance: TALAZOPARIB
     Indication: BREAST CANCER METASTATIC
     Dosage: UNKNOWN
     Dates: start: 202004, end: 202009
  2. TALAZOPARIB. [Suspect]
     Active Substance: TALAZOPARIB
     Dosage: UNKNOWN, DOSE REDUCED
     Dates: start: 202009, end: 202012

REACTIONS (2)
  - Neoplasm progression [Unknown]
  - Anaemia [Unknown]

NARRATIVE: CASE EVENT DATE: 202009
